FAERS Safety Report 4463726-X (Version None)
Quarter: 2004Q3

REPORT INFORMATION
  Report Type: 
  Country: None (occurrence: None)
  Receive Date: 20040929
  Receipt Date: 20040914
  Transmission Date: 20050211
  Serious: Yes (Life-Threatening)
  Sender: FDA-Public Use
  Company Number: EWC040940681

PATIENT
  Age: 69 Year
  Sex: Male

DRUGS (2)
  1. GEMCITABINE HYDROCHLORIDE           (GEMCITABINE) [Suspect]
     Dosage: 24.5 MG/KG/1 OTHER
     Route: 042
     Dates: start: 20040909, end: 20040909
  2. CISPLATIN [Concomitant]

REACTIONS (3)
  - BRADYCARDIA [None]
  - HYPERTENSIVE CRISIS [None]
  - RESPIRATORY FAILURE [None]
